FAERS Safety Report 7468985-7 (Version None)
Quarter: 2011Q2

REPORT INFORMATION
  Report Type: 
  Country: None (occurrence: None)
  Receive Date: 20110429
  Receipt Date: 20110419
  Transmission Date: 20111010
  Serious: Yes (Hospitalization)
  Sender: FDA-Public Use
  Company Number: WAES 1104USA03005

PATIENT
  Age: 73 Year
  Sex: Female
  Weight: 93.8946 kg

DRUGS (10)
  1. COLACE [Concomitant]
  2. TRIAMTEREN COMP [Concomitant]
  3. COMPAZINE [Concomitant]
  4. FLUOROURACIL [Suspect]
     Indication: COLON CANCER METASTATIC
     Dosage: 1800 MG/[2]/Q2W/IV
     Route: 042
     Dates: start: 20100915, end: 20110407
  5. OXYGEN [Concomitant]
  6. CITRACAL PETITES [Concomitant]
  7. LOSARTAN POTASSIUM [Concomitant]
  8. CAP VORINOSTAT 10 MG [Suspect]
     Indication: COLON CANCER METASTATIC
     Dosage: 100 MG/Q2W/PO
     Route: 048
     Dates: start: 20100914, end: 20110406
  9. K-DUR [Concomitant]
  10. LEUCOVORIN CALCIUM [Suspect]
     Indication: COLON CANCER METASTATIC
     Dosage: IV
     Route: 042
     Dates: end: 20110405

REACTIONS (9)
  - DYSPNOEA [None]
  - MONOCYTE PERCENTAGE INCREASED [None]
  - RESPIRATORY FAILURE [None]
  - BLOOD UREA INCREASED [None]
  - PNEUMONITIS [None]
  - NEOPLASM PROGRESSION [None]
  - EOSINOPHILIA [None]
  - BLOOD LACTATE DEHYDROGENASE INCREASED [None]
  - COUGH [None]
